FAERS Safety Report 8567612-5 (Version None)
Quarter: 2012Q3

REPORT INFORMATION
  Report Type: 
  Country: None (occurrence: None)
  Receive Date: 20120803
  Receipt Date: 20120727
  Transmission Date: 20120928
  Serious: Yes (Other)
  Sender: FDA-Public Use
  Company Number: US-ELI_LILLY_AND_COMPANY-US201207008786

PATIENT
  Sex: Female

DRUGS (1)
  1. FORTEO [Suspect]
     Indication: OSTEOPOROSIS
     Dosage: UNK UNK, UNKNOWN

REACTIONS (5)
  - HEART RATE INCREASED [None]
  - ANXIETY [None]
  - LOSS OF CONSCIOUSNESS [None]
  - ASTHENIA [None]
  - BLOOD PRESSURE DECREASED [None]
